FAERS Safety Report 5746945-1 (Version None)
Quarter: 2008Q2

REPORT INFORMATION
  Report Type: 
  Country: None (occurrence: None)
  Receive Date: 20080522
  Receipt Date: 20080514
  Transmission Date: 20081010
  Serious: No
  Sender: FDA-Public Use
  Company Number: US-BAXTER-2008BH005254

PATIENT
  Sex: Female
  Weight: 62 kg

DRUGS (8)
  1. GAMMAGARD LIQUID [Suspect]
     Indication: HYPOGAMMAGLOBULINAEMIA
     Route: 042
     Dates: start: 20080301, end: 20080301
  2. GAMMAGARD LIQUID [Suspect]
     Route: 042
     Dates: start: 20080418, end: 20080418
  3. GAMMAGARD LIQUID [Suspect]
     Route: 042
     Dates: start: 20080509, end: 20080509
  4. PHENYTOIN [Concomitant]
     Indication: DRUG USE FOR UNKNOWN INDICATION
     Route: 065
  5. OXYCONTIN [Concomitant]
     Indication: FIBROMYALGIA
     Route: 065
  6. ADVAIR DISKUS 100/50 [Concomitant]
     Indication: ASTHMA
     Dosage: DOSE UNIT:UNKNOWN
     Route: 065
  7. KYTRIL [Concomitant]
     Indication: NAUSEA
     Dosage: DOSE UNIT:UNKNOWN
     Route: 065
  8. ASPIRIN [Concomitant]
     Indication: DRUG USE FOR UNKNOWN INDICATION
     Dosage: DOSE UNIT:UNKNOWN
     Route: 065

REACTIONS (9)
  - ABASIA [None]
  - ACTIVITIES OF DAILY LIVING IMPAIRED [None]
  - ALTERED STATE OF CONSCIOUSNESS [None]
  - BACK PAIN [None]
  - CHILLS [None]
  - CONSTIPATION [None]
  - FATIGUE [None]
  - MENINGITIS ASEPTIC [None]
  - NAUSEA [None]
